FAERS Safety Report 8367614-8 (Version None)
Quarter: 2012Q1

REPORT INFORMATION
  Report Type: 
  Country: None (occurrence: None)
  Receive Date: 20120323
  Receipt Date: 20111114
  Transmission Date: 20120608
  Serious: Yes (Hospitalization)
  Sender: FDA-Public Use
  Company Number: 163-21880-11111964

PATIENT
  Age: 84 Year
  Sex: Female

DRUGS (9)
  1. REVLIMID [Suspect]
     Indication: MULTIPLE MYELOMA
     Dosage: 10 MG, 21, PO
     Route: 048
     Dates: start: 20110630
  2. PREDNISONE TAB [Concomitant]
  3. TIZANIDINE HCL [Concomitant]
  4. VITAMIN D [Concomitant]
  5. FUROSEMIDE [Concomitant]
  6. MILK OF MAGNESIA TAB [Concomitant]
  7. PERCOCET [Concomitant]
  8. ALBUTEROL SULFATE [Concomitant]
  9. PRAMIPEXOLE DIHYDROCHLORIDE [Concomitant]

REACTIONS (1)
  - PNEUMONIA [None]
